FAERS Safety Report 16945771 (Version 1)
Quarter: 2019Q4

REPORT INFORMATION
  Report Type: Spontaneous
  Country: US (occurrence: US)
  Receive Date: 20190830
  Receipt Date: 20190830
  Transmission Date: 20200122
  Serious: Yes (Hospitalization)
  Sender: FDA-Public Use
  Company Number: None

PATIENT
  Age: 48 Year
  Sex: Female

DRUGS (15)
  1. VALGANCICLOV [Concomitant]
  2. CETIRIZINE [Concomitant]
     Active Substance: CETIRIZINE HYDROCHLORIDE
  3. ESCITALOPRAM [Concomitant]
     Active Substance: ESCITALOPRAM OXALATE
  4. SENSIPAR [Suspect]
     Active Substance: CINACALCET HYDROCHLORIDE
     Indication: RENAL TRANSPLANT
     Route: 048
     Dates: start: 20180811
  5. HYDROXYZ HCL [Concomitant]
     Active Substance: HYDROXYZINE HYDROCHLORIDE
  6. PREDNISONE. [Concomitant]
     Active Substance: PREDNISONE
  7. NIFEDIPINE. [Concomitant]
     Active Substance: NIFEDIPINE
  8. MYCOPHENOLIC [Concomitant]
     Active Substance: MYCOPHENOLIC ACID
  9. TRIAMINOLON CRE [Concomitant]
  10. CARVEDILOL. [Concomitant]
     Active Substance: CARVEDILOL
  11. ENVARSUS XR [Concomitant]
     Active Substance: TACROLIMUS
  12. HYDRALAZINE [Concomitant]
     Active Substance: HYDRALAZINE HYDROCHLORIDE
  13. MONTELUKAST [Concomitant]
     Active Substance: MONTELUKAST SODIUM
  14. PRAVASTATIN. [Concomitant]
     Active Substance: PRAVASTATIN
  15. SYNTHROID [Concomitant]
     Active Substance: LEVOTHYROXINE SODIUM

REACTIONS (2)
  - Urinary tract infection [None]
  - Infection [None]

NARRATIVE: CASE EVENT DATE: 20190828
